FAERS Safety Report 9156165 (Version 1)
Quarter: 2013Q1

REPORT INFORMATION
  Report Type: Spontaneous
  Country: US (occurrence: US)
  Receive Date: 20130218
  Receipt Date: 20130218
  Transmission Date: 20140127
  Serious: Yes (Other)
  Sender: FDA-Public Use
  Company Number: US-RB-049968-13

PATIENT
  Age: 39 Year
  Sex: Female

DRUGS (3)
  1. SUBOXONE TABLET [Suspect]
     Indication: DRUG DEPENDENCE
     Route: 060
     Dates: start: 201209, end: 201210
  2. SUBOXONE FILM [Suspect]
     Indication: DRUG DEPENDENCE
     Dosage: SUBOXONE FILM
     Route: 060
     Dates: start: 201210, end: 201211
  3. NICOTINE [Suspect]
     Indication: NICOTINE DEPENDENCE
     Dosage: 20 CIGARETTES PER DAY
     Route: 055
     Dates: start: 2010

REACTIONS (3)
  - Exposure during pregnancy [Recovered/Resolved]
  - Malaise [Recovered/Resolved]
  - Abortion spontaneous [Recovered/Resolved]
